FAERS Safety Report 13852543 (Version 1)
Quarter: 2017Q3

REPORT INFORMATION
  Report Type: Spontaneous
  Country: CH (occurrence: CH)
  Receive Date: 20170810
  Receipt Date: 20170810
  Transmission Date: 20171127
  Serious: Yes (Other)
  Sender: FDA-Public Use
  Company Number: CH-INGENUS PHARMACEUTICALS NJ, LLC-ING201707-000369

PATIENT
  Age: 45 Year
  Sex: Female

DRUGS (1)
  1. PROBENECID AND COLCHICINE [Suspect]
     Active Substance: COLCHICINE\PROBENECID

REACTIONS (13)
  - Pancytopenia [Unknown]
  - Neutrophil morphology abnormal [Recovering/Resolving]
  - Diarrhoea [Unknown]
  - Eosinophil morphology abnormal [Unknown]
  - Encephalopathy [Unknown]
  - Coma [Unknown]
  - Renal failure [Unknown]
  - Accidental exposure to product [Unknown]
  - Toxicity to various agents [Unknown]
  - Hemiparesis [Unknown]
  - Hepatic failure [Unknown]
  - Vomiting [Unknown]
  - Abdominal pain [Unknown]
